FAERS Safety Report 8858134 (Version 1)
Quarter: 2012Q4

REPORT INFORMATION
  Report Type: 
  Country: US (occurrence: US)
  Receive Date: 20121024
  Receipt Date: 20121024
  Transmission Date: 20130627
  Serious: No
  Sender: FDA-Public Use
  Company Number: US-AMGEN-USASP2011065505

PATIENT
  Age: 53 Year
  Sex: Female

DRUGS (10)
  1. ENBREL [Suspect]
     Indication: PRODUCT USED FOR UNKNOWN INDICATION
     Dosage: 50 mg, qwk
     Route: 058
  2. LISINOPRIL [Concomitant]
     Dosage: 2.5 mg, UNK
     Route: 048
  3. LEVOTHYROXIN [Concomitant]
     Dosage: 125 mug, UNK
     Route: 048
  4. SIMVASTATIN [Concomitant]
     Dosage: 10 mg, UNK
     Route: 048
  5. METHOTREXATE [Concomitant]
     Dosage: 2.5 mg, UNK
     Route: 048
  6. FOLIC ACID [Concomitant]
     Dosage: 20 mg, UNK
     Route: 048
  7. LIDODERM [Concomitant]
     Dosage: 5 %, UNK
  8. FEXOFENADINE [Concomitant]
     Dosage: 180 mg, UNK
     Route: 048
  9. NASAL SPRAY II [Concomitant]
     Dosage: 0.05 %, UNK
  10. NOVOLOG [Concomitant]
     Dosage: UNK

REACTIONS (1)
  - Sinusitis [Unknown]
